FAERS Safety Report 23485759 (Version 1)
Quarter: 2024Q1

REPORT INFORMATION
  Report Type: Report from Study
  Country: US (occurrence: US)
  Receive Date: 20240206
  Receipt Date: 20240206
  Transmission Date: 20240410
  Serious: Yes (Other)
  Sender: FDA-Public Use
  Company Number: US-AUROBINDO-AUR-APL-2024-005402

PATIENT
  Age: 55 Year
  Sex: Male

DRUGS (2)
  1. SEVELAMER CARBONATE [Suspect]
     Active Substance: SEVELAMER CARBONATE
     Indication: Gastrointestinal inflammation
     Dosage: 4800 MILLIGRAM, ONCE A DAY
     Route: 065
  2. SEVELAMER CARBONATE [Suspect]
     Active Substance: SEVELAMER CARBONATE
     Indication: End stage renal disease

REACTIONS (1)
  - Large intestinal stenosis [Unknown]
